FAERS Safety Report 8280815-2 (Version None)
Quarter: 2012Q2

REPORT INFORMATION
  Report Type: 
  Country: None (occurrence: None)
  Receive Date: 20120412
  Receipt Date: 20120405
  Transmission Date: 20120825
  Serious: Yes (Hospitalization, Other)
  Sender: FDA-Public Use
  Company Number: US-ABBOTT-12P-163-0922443-00

PATIENT
  Sex: Female
  Weight: 59.02 kg

DRUGS (2)
  1. HUMIRA [Suspect]
     Indication: RHEUMATOID ARTHRITIS
     Dates: start: 20120401
  2. HUMIRA [Suspect]

REACTIONS (3)
  - HYPERKERATOSIS [None]
  - SKIN ULCER [None]
  - INFECTED SKIN ULCER [None]
